FAERS Safety Report 5013450-X (Version None)
Quarter: 2006Q2

REPORT INFORMATION
  Report Type: 
  Country: None (occurrence: None)
  Receive Date: 20060530
  Receipt Date: 20060425
  Transmission Date: 20061013
  Serious: Yes (Other)
  Sender: FDA-Public Use
  Company Number: 2006GB00700

PATIENT
  Age: 64 Year
  Sex: Female

DRUGS (1)
  1. ATENOLOL [Suspect]
     Indication: HYPERTENSION
     Route: 048
     Dates: start: 20060127, end: 20060203

REACTIONS (4)
  - COAGULOPATHY [None]
  - EPISTAXIS [None]
  - MELAENA [None]
  - PLATELET COUNT DECREASED [None]
